FAERS Safety Report 7685309-0 (Version None)
Quarter: 2011Q3

REPORT INFORMATION
  Report Type: 
  Country: None (occurrence: None)
  Receive Date: 20110816
  Receipt Date: 20110816
  Transmission Date: 20111222
  Serious: Yes (Other)
  Sender: FDA-Public Use
  Company Number: BE-ABBOTT-11P-013-0845253-00

PATIENT
  Sex: Male

DRUGS (2)
  1. SEVOFLURANE [Suspect]
     Indication: GENERAL ANAESTHESIA
  2. SEVOFLURANE [Suspect]
     Indication: CARDIAC OPERATION

REACTIONS (2)
  - DEVICE MALFUNCTION [None]
  - OXYGEN SATURATION DECREASED [None]
